FAERS Safety Report 8382048-8 (Version None)
Quarter: 2012Q2

REPORT INFORMATION
  Report Type: 
  Country: None (occurrence: None)
  Receive Date: 20120524
  Receipt Date: 20120518
  Transmission Date: 20120825
  Serious: Yes (Other)
  Sender: FDA-Public Use
  Company Number: US-AMGEN-USASP2012031850

PATIENT
  Sex: Male

DRUGS (2)
  1. SENSIPAR [Suspect]
     Indication: BLOOD PARATHYROID HORMONE ABNORMAL
  2. SENSIPAR [Suspect]
     Indication: DIALYSIS
     Dosage: 30 MG, QD
     Route: 048
     Dates: start: 20120413

REACTIONS (1)
  - BLOOD LACTATE DEHYDROGENASE INCREASED [None]
